FAERS Safety Report 19047477 (Version 2)
Quarter: 2021Q2

REPORT INFORMATION
  Report Type: Spontaneous
  Country: US (occurrence: US)
  Receive Date: 20210323
  Receipt Date: 20210622
  Transmission Date: 20210717
  Serious: No
  Sender: FDA-Public Use
  Company Number: US-BRISTOL-MYERS SQUIBB COMPANY-BMS-2021-028503

PATIENT
  Age: 65 Year
  Sex: Male

DRUGS (1)
  1. NULOJIX [Suspect]
     Active Substance: BELATACEPT
     Indication: RENAL TRANSPLANT
     Dosage: 750 MILLIGRAM, Q4WK
     Route: 042
     Dates: end: 20210303

REACTIONS (3)
  - Malaise [Unknown]
  - Pruritus [Unknown]
  - Flushing [Unknown]
